FAERS Safety Report 6093736-0 (Version None)
Quarter: 2009Q1

REPORT INFORMATION
  Report Type: 
  Country: None (occurrence: None)
  Receive Date: 20090223
  Receipt Date: 20090223
  Transmission Date: 20090719
  Serious: Yes (Life-Threatening)
  Sender: FDA-Public Use
  Company Number: None

PATIENT
  Age: 45 Year
  Sex: Male
  Weight: 77.1115 kg

DRUGS (2)
  1. PRILOSEC OTC [Suspect]
     Indication: DYSPEPSIA
     Dosage: 20MG DAILY PO
     Route: 048
     Dates: start: 20080710, end: 20080721
  2. PRILOSEC OTC [Suspect]
     Indication: DYSPEPSIA
     Dosage: 20MG DAILY PO
     Route: 048
     Dates: start: 20090126, end: 20090207

REACTIONS (5)
  - ARRHYTHMIA [None]
  - DIZZINESS [None]
  - PALPITATIONS [None]
  - PANIC REACTION [None]
  - TACHYCARDIA [None]
